FAERS Safety Report 6564597-8 (Version None)
Quarter: 2010Q1

REPORT INFORMATION
  Report Type: 
  Country: None (occurrence: None)
  Receive Date: 20100201
  Receipt Date: 20100127
  Transmission Date: 20100710
  Serious: Yes (Death)
  Sender: FDA-Public Use
  Company Number: PHHY2009JP56795

PATIENT
  Sex: Female

DRUGS (7)
  1. ZOLEDRONATE T29581+ [Suspect]
     Indication: METASTASES TO BONE
     Dosage: 4MG (EVERY THREE WEEKS)
     Route: 042
     Dates: start: 20071221, end: 20080124
  2. GEMCITABINE HCL [Concomitant]
     Indication: PANCREATIC CARCINOMA
     Dosage: UNK
     Route: 042
     Dates: start: 20071226, end: 20080109
  3. KYTRIL [Concomitant]
     Indication: PROPHYLAXIS
     Dosage: UNK
     Route: 042
     Dates: start: 20071226, end: 20080109
  4. LASIX [Concomitant]
     Indication: LIVER DISORDER
     Dosage: UNK
     Route: 042
     Dates: start: 20080111, end: 20080112
  5. MORPHINE [Concomitant]
     Indication: CANCER PAIN
     Dosage: 30 MG, UNK
     Route: 048
     Dates: start: 20071221, end: 20080130
  6. MORPHINE [Concomitant]
     Dosage: UNK
     Route: 042
     Dates: start: 20071221, end: 20080130
  7. FENTANYL [Concomitant]
     Indication: CANCER PAIN
     Dosage: UNK
     Route: 062
     Dates: start: 20080107, end: 20080130

REACTIONS (1)
  - MALIGNANT NEOPLASM PROGRESSION [None]
